FAERS Safety Report 17472203 (Version 7)
Quarter: 2022Q1

REPORT INFORMATION
  Report Type: Report from Study
  Country: BR (occurrence: None)
  Receive Date: 20200228
  Receipt Date: 20220211
  Transmission Date: 20220423
  Serious: Yes (Hospitalization)
  Sender: FDA-Public Use
  Company Number: BR-ROCHE-2549703

PATIENT
  Age: 54 Year
  Sex: Female
  Weight: 55.1 kg

DRUGS (56)
  1. ATEZOLIZUMAB [Suspect]
     Active Substance: ATEZOLIZUMAB
     Indication: Renal cell carcinoma
     Dosage: DATE OF MOST RECENT DOSE OF BLINDED ATEZOLIZUMAB PRIOR TO ADVERSE EVENT AND SERIOUS ADVERSE ONSET: 1
     Route: 041
     Dates: start: 20181026
  2. DIPYRONE [Concomitant]
     Active Substance: DIPYRONE
     Route: 048
     Dates: start: 20190821
  3. DOMPERIDONE [Concomitant]
     Active Substance: DOMPERIDONE
     Route: 048
     Dates: start: 20191220
  4. PREDNISONE [Concomitant]
     Active Substance: PREDNISONE
     Route: 048
     Dates: start: 20200309, end: 20200316
  5. LUFTAL [SIMETICONE] [Concomitant]
     Route: 048
     Dates: start: 20191220
  6. LUFTAL [SIMETICONE] [Concomitant]
     Route: 048
     Dates: start: 20200211, end: 20200217
  7. LUFTAL [SIMETICONE] [Concomitant]
     Route: 065
     Dates: start: 20200223, end: 20200309
  8. LUFTAL [SIMETICONE] [Concomitant]
     Route: 048
     Dates: start: 20200217, end: 20200218
  9. INFLIXIMAB [Concomitant]
     Active Substance: INFLIXIMAB
     Route: 042
     Dates: start: 20200127, end: 20200127
  10. INFLIXIMAB [Concomitant]
     Active Substance: INFLIXIMAB
     Route: 042
     Dates: start: 20200221, end: 20200221
  11. FAMOTIDINE [Concomitant]
     Active Substance: FAMOTIDINE
     Route: 048
     Dates: start: 20200127, end: 20200127
  12. DIPHENHYDRAMINE [Concomitant]
     Active Substance: DIPHENHYDRAMINE
     Route: 042
     Dates: start: 20200127, end: 20200127
  13. OMEPRAZOLE [Concomitant]
     Active Substance: OMEPRAZOLE
     Route: 048
     Dates: start: 20191220
  14. FUROSEMIDE\POTASSIUM CHLORIDE [Concomitant]
     Active Substance: FUROSEMIDE\POTASSIUM CHLORIDE
     Dosage: DOSE: 40 MG/ 100 MG
  15. .ALPHA.-TOCOPHEROL ACETATE [Concomitant]
     Active Substance: .ALPHA.-TOCOPHEROL ACETATE
     Route: 061
     Dates: start: 20200211, end: 20200309
  16. AMINO ACIDS\DEXTROSE\ELECTROLYTES NOS\SOYBEAN OIL [Concomitant]
     Active Substance: AMINO ACIDS\DEXTROSE\ELECTROLYTES NOS\SOYBEAN OIL
     Route: 042
     Dates: start: 20200218, end: 20200302
  17. SCOPOLAMINE [Concomitant]
     Active Substance: SCOPOLAMINE
     Route: 042
     Dates: start: 20200215, end: 20200215
  18. BROMOPRIDA [Concomitant]
     Route: 042
     Dates: start: 20200224, end: 20200225
  19. SLOW K [Concomitant]
     Active Substance: POTASSIUM CHLORIDE
     Route: 048
     Dates: start: 20200211, end: 20200212
  20. SLOW K [Concomitant]
     Active Substance: POTASSIUM CHLORIDE
     Route: 048
     Dates: start: 20200214, end: 20200218
  21. SLOW K [Concomitant]
     Active Substance: POTASSIUM CHLORIDE
     Route: 048
     Dates: start: 20200303
  22. DIMENHYDRINATE [Concomitant]
     Active Substance: DIMENHYDRINATE
     Route: 042
     Dates: start: 20200218, end: 20200218
  23. DIMENHYDRINATE [Concomitant]
     Active Substance: DIMENHYDRINATE
     Route: 042
     Dates: start: 20200227, end: 20200227
  24. VITAMINS [Concomitant]
     Active Substance: VITAMINS
     Route: 042
     Dates: start: 20200212, end: 20200212
  25. VITAMINS [Concomitant]
     Active Substance: VITAMINS
     Route: 042
     Dates: start: 20200213, end: 20200218
  26. VITAMINS [Concomitant]
     Active Substance: VITAMINS
     Route: 042
     Dates: start: 20200219, end: 20200301
  27. VITAMINS [Concomitant]
     Active Substance: VITAMINS
     Route: 042
     Dates: start: 20200306, end: 20200307
  28. ENOXAPARIN SODIUM [Concomitant]
     Active Substance: ENOXAPARIN SODIUM
     Route: 058
     Dates: start: 20200214, end: 20200218
  29. ENOXAPARIN SODIUM [Concomitant]
     Active Substance: ENOXAPARIN SODIUM
     Route: 058
     Dates: start: 20200220, end: 20200308
  30. FUROSEMIDE\POTASSIUM CHLORIDE [Concomitant]
     Active Substance: FUROSEMIDE\POTASSIUM CHLORIDE
     Route: 048
     Dates: start: 20200211, end: 20200212
  31. LOSEC [Concomitant]
     Active Substance: OMEPRAZOLE
     Route: 048
     Dates: start: 20200212, end: 20200227
  32. METICORTEN [Concomitant]
     Active Substance: PREDNISONE
     Route: 048
     Dates: start: 20200211, end: 20200219
  33. METICORTEN [Concomitant]
     Active Substance: PREDNISONE
     Route: 048
     Dates: start: 20200221, end: 20200221
  34. NYSTATIN [Concomitant]
     Active Substance: NYSTATIN
     Dates: start: 20200219, end: 20200303
  35. METAMIZOLE SODIUM [Concomitant]
     Active Substance: METAMIZOLE SODIUM
     Route: 042
     Dates: start: 20200220, end: 20200220
  36. METAMIZOLE SODIUM [Concomitant]
     Active Substance: METAMIZOLE SODIUM
     Route: 042
     Dates: start: 20200227, end: 20200227
  37. OLIG TRAT [Concomitant]
     Dosage: 2 ML (MILLILITER; CM3)
     Route: 042
     Dates: start: 20200212, end: 20200301
  38. OLIMEL [Concomitant]
     Active Substance: AMINO ACIDS\DEXTROSE\SOYBEAN OIL
     Dosage: 1000 ML (MILLILITER; CM3
     Route: 042
     Dates: start: 20200211, end: 20200212
  39. OLIMEL [Concomitant]
     Active Substance: AMINO ACIDS\DEXTROSE\SOYBEAN OIL
     Dosage: 1000 ML (MILLILITER; CM3)
     Route: 042
     Dates: start: 20200213, end: 20200217
  40. OLIMEL [Concomitant]
     Active Substance: AMINO ACIDS\DEXTROSE\SOYBEAN OIL
     Dosage: 1000 ML (MILLILITER; CM3)
     Route: 042
     Dates: start: 20200304, end: 20200307
  41. OLIMEL [Concomitant]
     Active Substance: AMINO ACIDS\DEXTROSE\SOYBEAN OIL
     Dosage: 1000 ML (MILLILITER; CM3)
     Route: 042
     Dates: start: 20200302, end: 20200303
  42. PERIDAL [DOMPERIDONE] [Concomitant]
     Route: 048
     Dates: start: 20200211, end: 20200218
  43. PERIDAL [DOMPERIDONE] [Concomitant]
     Route: 048
     Dates: start: 20200219, end: 20200219
  44. PERIDAL [DOMPERIDONE] [Concomitant]
     Route: 048
     Dates: start: 20200220
  45. PROBIATOP [Concomitant]
     Route: 048
     Dates: start: 20200216, end: 20200217
  46. MAGNESIUM SULFATE [Concomitant]
     Active Substance: MAGNESIUM SULFATE
     Route: 048
     Dates: start: 20200211, end: 20200212
  47. MAGNESIUM SULFATE [Concomitant]
     Active Substance: MAGNESIUM SULFATE
     Route: 048
     Dates: start: 20200103, end: 20200103
  48. VITAMIN B1 [Concomitant]
     Active Substance: THIAMINE HYDROCHLORIDE
     Route: 042
     Dates: start: 20200212, end: 20200214
  49. VITAMIN B1 [Concomitant]
     Active Substance: THIAMINE HYDROCHLORIDE
     Route: 042
     Dates: start: 20200215, end: 20200218
  50. RACECADOTRIL [Concomitant]
     Active Substance: RACECADOTRIL
     Route: 048
     Dates: start: 20200222, end: 20200223
  51. TRAMADOL [Concomitant]
     Active Substance: TRAMADOL
     Route: 042
     Dates: start: 20200216, end: 20200216
  52. ERYTHROMYCIN [Concomitant]
     Active Substance: ERYTHROMYCIN
     Route: 042
     Dates: start: 20200226, end: 20200307
  53. UNIMEDROL [Concomitant]
     Route: 042
     Dates: start: 20200221, end: 20200308
  54. BENALET [Concomitant]
     Active Substance: AMMONIUM CHLORIDE\DIPHENHYDRAMINE HYDROCHLORIDE\SODIUM CITRATE
     Dosage: 1 U
     Route: 048
     Dates: start: 20200305, end: 20200309
  55. MYLANTA [Concomitant]
     Active Substance: ALUMINUM HYDROXIDE\DIMETHICONE\MAGNESIUM HYDROXIDE
     Route: 048
     Dates: start: 20200306, end: 20200309
  56. INSULIN NOS [Concomitant]
     Active Substance: INSULIN NOS
     Route: 058
     Dates: start: 20200306, end: 20200306

REACTIONS (1)
  - Malnutrition [Recovered/Resolved]

NARRATIVE: CASE EVENT DATE: 20200207
